FAERS Safety Report 23956848 (Version 1)
Quarter: 2024Q2

REPORT INFORMATION
  Report Type: Spontaneous
  Country: US (occurrence: US)
  Receive Date: 20240610
  Receipt Date: 20240610
  Transmission Date: 20240716
  Serious: No
  Sender: FDA-Public Use
  Company Number: US-VANDA PHARMACEUTICALS, INC-2024ILOUS001944

PATIENT
  Age: 36 Year
  Sex: Female

DRUGS (1)
  1. FANAPT [Suspect]
     Active Substance: ILOPERIDONE
     Indication: Schizophrenia
     Dosage: 1 MILLIGRAM, QD
     Route: 048

REACTIONS (2)
  - Akathisia [Recovered/Resolved]
  - Tachycardia [Recovered/Resolved]
